FAERS Safety Report 10217134 (Version 2)
Quarter: 2015Q2

REPORT INFORMATION
  Report Type: Spontaneous
  Country: DK (occurrence: DK)
  Receive Date: 20140604
  Receipt Date: 20150406
  Transmission Date: 20150821
  Serious: Yes (Hospitalization, Other)
  Sender: FDA-Public Use
  Company Number: PHHY2014DK066244

PATIENT
  Age: 53 Year
  Sex: Female

DRUGS (4)
  1. EXTAVIA [Suspect]
     Active Substance: INTERFERON BETA-1B
     Dosage: 250 UG/ML, UNK
     Route: 058
     Dates: end: 201402
  2. EXTAVIA [Suspect]
     Active Substance: INTERFERON BETA-1B
     Dosage: 1 ML, QOD
     Route: 058
  3. ENALAPRIL [Concomitant]
     Active Substance: ENALAPRIL
     Indication: HYPERTENSION
     Dosage: UNK UKN, UNK
     Route: 065
  4. EXTAVIA [Suspect]
     Active Substance: INTERFERON BETA-1B
     Indication: MULTIPLE SCLEROSIS
     Dosage: 250 UG, UNK
     Route: 058
     Dates: start: 1996

REACTIONS (18)
  - Dialysis [Unknown]
  - Haemolytic uraemic syndrome [Not Recovered/Not Resolved]
  - Hypertension [Unknown]
  - Syncope [Unknown]
  - Malaise [Unknown]
  - Vomiting [Unknown]
  - Infection [Unknown]
  - Headache [Unknown]
  - Nephrosclerosis [Unknown]
  - Pyrexia [Unknown]
  - Lymphadenopathy [Unknown]
  - Nausea [Unknown]
  - Anaemia [Unknown]
  - Influenza like illness [Unknown]
  - Multiple sclerosis [Unknown]
  - Fatigue [Unknown]
  - Renal failure [Unknown]
  - Nephropathy [Unknown]

NARRATIVE: CASE EVENT DATE: 2013
